FAERS Safety Report 24127256 (Version 1)
Quarter: 2024Q3

REPORT INFORMATION
  Report Type: Spontaneous
  Country: CN (occurrence: CN)
  Receive Date: 20240723
  Receipt Date: 20240723
  Transmission Date: 20241016
  Serious: Yes (Hospitalization, Other)
  Sender: LEADING PHARMA
  Company Number: CN-LEADINGPHARMA-CN-2024LEALIT00306

PATIENT
  Age: 53 Year
  Sex: Male
  Weight: 65 kg

DRUGS (1)
  1. LIDOCAINE [Suspect]
     Active Substance: LIDOCAINE
     Indication: Nerve block
     Route: 065

REACTIONS (18)
  - Loss of consciousness [Recovered/Resolved]
  - Blindness transient [Recovered/Resolved]
  - Cerebral infarction [Recovered/Resolved]
  - Migraine [Recovered/Resolved]
  - Fatigue [Recovered/Resolved]
  - Restlessness [Recovered/Resolved]
  - Panic disorder [Recovered/Resolved]
  - Injury associated with device [Unknown]
  - Medication error [Unknown]
  - Product use in unapproved indication [Unknown]
  - Injury associated with device [None]
  - Iatrogenic injury [None]
  - Vertebral artery perforation [None]
  - Anaesthetic complication [None]
  - Accidental exposure to product [None]
  - Wrong route [None]
  - Procedural complication [None]
  - Air embolism [None]
